FAERS Safety Report 6160951-7 (Version None)
Quarter: 2009Q2

REPORT INFORMATION
  Report Type: 
  Country: None (occurrence: None)
  Receive Date: 20090417
  Receipt Date: 20090417
  Transmission Date: 20091009
  Serious: Yes (Other)
  Sender: FDA-Public Use
  Company Number: None

PATIENT
  Sex: Female
  Weight: 46.7 kg

DRUGS (1)
  1. PACLITAXEL [Suspect]
     Dosage: 192 MG
     Dates: start: 20090401, end: 20090402

REACTIONS (1)
  - SWELLING FACE [None]
